FAERS Safety Report 20405203 (Version 2)
Quarter: 2022Q1

REPORT INFORMATION
  Report Type: Spontaneous
  Country: CZ (occurrence: CZ)
  Receive Date: 20220131
  Receipt Date: 20220322
  Transmission Date: 20220423
  Serious: Yes (Other)
  Sender: FDA-Public Use
  Company Number: CZ-MYLANLABS-2022M1008846

PATIENT
  Age: 59 Year
  Sex: Male

DRUGS (14)
  1. OXALIPLATIN [Suspect]
     Active Substance: OXALIPLATIN
     Indication: Colorectal cancer stage IV
     Dosage: UNK
  2. OXALIPLATIN [Suspect]
     Active Substance: OXALIPLATIN
     Indication: Adenocarcinoma
  3. IRINOTECAN [Suspect]
     Active Substance: IRINOTECAN
     Indication: Colorectal cancer stage IV
     Dosage: UNK
     Dates: start: 202004
  4. IRINOTECAN [Suspect]
     Active Substance: IRINOTECAN
     Indication: Disease progression
     Dosage: UNK
     Dates: start: 2020, end: 202011
  5. FLUOROURACIL [Concomitant]
     Active Substance: FLUOROURACIL
     Indication: Colorectal cancer stage IV
     Dosage: UNK
  6. FLUOROURACIL [Concomitant]
     Active Substance: FLUOROURACIL
     Indication: Adenocarcinoma
     Dosage: UNK
     Dates: start: 2020, end: 202011
  7. FLUOROURACIL [Concomitant]
     Active Substance: FLUOROURACIL
     Indication: Disease progression
  8. LEUCOVORIN [Concomitant]
     Active Substance: LEUCOVORIN
     Indication: Adenocarcinoma
     Dosage: UNK
  9. LEUCOVORIN [Concomitant]
     Active Substance: LEUCOVORIN
     Indication: Colorectal cancer stage IV
     Dosage: UNK
     Dates: start: 202004, end: 202011
  10. LEUCOVORIN [Concomitant]
     Active Substance: LEUCOVORIN
     Indication: Disease progression
     Dosage: UNK
     Dates: start: 2020, end: 202011
  11. ZALTRAP [Concomitant]
     Active Substance: ZIV-AFLIBERCEPT
     Indication: Disease progression
     Dosage: 4 MILLIGRAM/KILOGRAM
     Dates: start: 202004
  12. ZALTRAP [Concomitant]
     Active Substance: ZIV-AFLIBERCEPT
     Indication: Colorectal cancer stage IV
     Dosage: 4 MILLIGRAM/KILOGRAM
     Dates: start: 2020, end: 202011
  13. VECTIBIX [Concomitant]
     Active Substance: PANITUMUMAB
     Indication: Colorectal cancer stage IV
     Dosage: UNK
  14. VECTIBIX [Concomitant]
     Active Substance: PANITUMUMAB
     Indication: Adenocarcinoma

REACTIONS (4)
  - Rectal haemorrhage [Recovered/Resolved]
  - Paraesthesia [Unknown]
  - Toxicity to various agents [Unknown]
  - Rectal tenesmus [Recovered/Resolved]

NARRATIVE: CASE EVENT DATE: 20200101
